FAERS Safety Report 13677127 (Version 1)
Quarter: 2017Q2

REPORT INFORMATION
  Report Type: Spontaneous
  Country: US (occurrence: US)
  Receive Date: 20170622
  Receipt Date: 20170622
  Transmission Date: 20170830
  Serious: No
  Sender: FDA-Public Use
  Company Number: US-MISSION PHARMACAL COMPANY-2022386

PATIENT
  Age: 17 Year
  Sex: Female

DRUGS (1)
  1. THIOLA [Suspect]
     Active Substance: TIOPRONIN
     Indication: CYSTINURIA
     Route: 065
     Dates: start: 20170516

REACTIONS (5)
  - Incorrect dose administered [Unknown]
  - Increased tendency to bruise [Unknown]
  - Haematochezia [Unknown]
  - Nausea [Unknown]
  - Abdominal pain [Unknown]
